FAERS Safety Report 4511709-3 (Version None)
Quarter: 2004Q4

REPORT INFORMATION
  Report Type: 
  Country: None (occurrence: None)
  Receive Date: 20041129
  Receipt Date: 20041119
  Transmission Date: 20050328
  Serious: Yes (Disabling)
  Sender: FDA-Public Use
  Company Number: GBWYE213418NOV04

PATIENT
  Age: 59 Year
  Weight: 104 kg

DRUGS (8)
  1. ENBREL [Suspect]
     Indication: RHEUMATOID ARTHRITIS
     Route: 058
     Dates: start: 20040206
  2. WARFARIN SODIUM [Suspect]
     Indication: AORTIC VALVE REPAIR
     Dosage: VARIES
     Route: 048
  3. INSULIN [Concomitant]
     Dosage: UNKNOWN
     Route: 058
  4. FUROSEMIDE [Concomitant]
     Dosage: 80MG FREQUENCY UNKNOWN
     Route: 048
  5. THYROXINE I 125 [Concomitant]
     Dosage: 50MCG FREQUENCY UNKNOWN
     Route: 048
  6. ZANTAC [Concomitant]
     Route: 048
  7. MOBIC [Concomitant]
     Dosage: 15MG FREQUENCY UNKNOWN
  8. FERROUS SULFATE TAB [Concomitant]
     Dosage: 20MG FREQUENCY UNKNOWN

REACTIONS (4)
  - DEAFNESS UNILATERAL [None]
  - INFARCTION [None]
  - NERVOUS SYSTEM DISORDER [None]
  - THROMBOSIS [None]
